FAERS Safety Report 4818994-9 (Version None)
Quarter: 2005Q4

REPORT INFORMATION
  Report Type: 
  Country: None (occurrence: None)
  Receive Date: 20051103
  Receipt Date: 20040317
  Transmission Date: 20060501
  Serious: Yes (Hospitalization)
  Sender: FDA-Public Use
  Company Number: ES-AMGEN-US070411

PATIENT
  Sex: Female

DRUGS (5)
  1. ENBREL [Suspect]
     Indication: JUVENILE ARTHRITIS
     Route: 058
     Dates: start: 20040114, end: 20040301
  2. METHOTREXATE [Concomitant]
     Dates: start: 20021201, end: 20040309
  3. DEFLAZACORT [Concomitant]
     Dates: start: 20021201
  4. INDOMETHACIN [Concomitant]
     Dates: start: 20021201
  5. OMEPRAZOLE [Concomitant]

REACTIONS (1)
  - BENIGN INTRACRANIAL HYPERTENSION [None]
